FAERS Safety Report 7018340-9 (Version None)
Quarter: 2010Q3

REPORT INFORMATION
  Report Type: 
  Country: None (occurrence: None)
  Receive Date: 20100924
  Receipt Date: 20100913
  Transmission Date: 20110219
  Serious: Yes (Hospitalization)
  Sender: FDA-Public Use
  Company Number: A-US2010-39783

PATIENT
  Age: 48 Year
  Sex: Female

DRUGS (4)
  1. TRACLEER [Suspect]
     Indication: PULMONARY ARTERIAL HYPERTENSION
     Dosage: UNK ORAL
     Route: 048
     Dates: start: 20060704
  2. VENTAVIS [Concomitant]
  3. COUMADIN [Concomitant]
  4. VIAGRA [Concomitant]

REACTIONS (1)
  - BACTERAEMIA [None]
